FAERS Safety Report 5890968-9 (Version None)
Quarter: 2008Q3

REPORT INFORMATION
  Report Type: 
  Country: None (occurrence: None)
  Receive Date: 20080922
  Receipt Date: 20080912
  Transmission Date: 20090109
  Serious: Yes (Death, Hospitalization)
  Sender: FDA-Public Use
  Company Number: A0748490A

PATIENT
  Age: 65 Year
  Sex: Male

DRUGS (9)
  1. AVANDIA [Suspect]
     Dosage: 8MG PER DAY
     Route: 048
     Dates: start: 20041228, end: 20070320
  2. DIOVAN [Concomitant]
  3. PREVACID [Concomitant]
  4. AMARYL [Concomitant]
  5. COREG [Concomitant]
  6. FUROSEMIDE [Concomitant]
  7. GLIMEPIRIDE [Concomitant]
  8. LIPITOR [Concomitant]
  9. ASPIRIN [Concomitant]

REACTIONS (1)
  - CARDIAC FAILURE CONGESTIVE [None]
